FAERS Safety Report 20172988 (Version 1)
Quarter: 2021Q4

REPORT INFORMATION
  Report Type: Spontaneous
  Country: JP (occurrence: JP)
  Receive Date: 20211211
  Receipt Date: 20211211
  Transmission Date: 20220303
  Serious: Yes (Life-Threatening, Other)
  Sender: FDA-Public Use
  Company Number: JP-NBI-J202123217BIPI

PATIENT

DRUGS (1)
  1. JARDIANCE [Suspect]
     Active Substance: EMPAGLIFLOZIN
     Indication: Type 2 diabetes mellitus
     Route: 048

REACTIONS (2)
  - Gastric cancer [Unknown]
  - Weight decreased [Unknown]
